FAERS Safety Report 8136025-2 (Version None)
Quarter: 2012Q1

REPORT INFORMATION
  Report Type: 
  Country: None (occurrence: None)
  Receive Date: 20120214
  Receipt Date: 20120209
  Transmission Date: 20120608
  Serious: No
  Sender: FDA-Public Use
  Company Number: US-PFIZER INC-2012036315

PATIENT
  Sex: Female
  Weight: 49.4 kg

DRUGS (2)
  1. INDERAL LA [Concomitant]
     Dosage: UNK
  2. PREMARIN [Suspect]
     Indication: VULVOVAGINAL DRYNESS
     Dosage: UNK
     Dates: start: 20120208

REACTIONS (2)
  - VISION BLURRED [None]
  - FEELING ABNORMAL [None]
